FAERS Safety Report 16836661 (Version 3)
Quarter: 2019Q4

REPORT INFORMATION
  Report Type: Report from Study
  Country: US (occurrence: US)
  Receive Date: 20190922
  Receipt Date: 20191016
  Transmission Date: 20200122
  Serious: Yes (Life-Threatening, Hospitalization, Other)
  Sender: FDA-Public Use
  Company Number: PHEH2019US039148

PATIENT
  Sex: Female

DRUGS (1)
  1. AFINITOR [Suspect]
     Active Substance: EVEROLIMUS
     Indication: BENIGN NEOPLASM OF THYMUS
     Dosage: 10 MG, QD
     Route: 048

REACTIONS (6)
  - Pleural effusion [Recovering/Resolving]
  - Pericardial effusion [Unknown]
  - Rash [Recovering/Resolving]
  - Acne [Unknown]
  - Pericarditis [Unknown]
  - Oedema peripheral [Recovering/Resolving]
